FAERS Safety Report 9186028 (Version 1)
Quarter: 2013Q1

REPORT INFORMATION
  Report Type: Spontaneous
  Country: US (occurrence: None)
  Receive Date: 20120628
  Receipt Date: 20120628
  Transmission Date: 20140127
  Serious: Yes (Disabling, Other)
  Sender: FDA-Public Use
  Company Number: PHEH2012US008095

PATIENT
  Age: 68 Year
  Sex: Female
  Weight: 78 kg

DRUGS (7)
  1. RECLAST [Suspect]
     Indication: OSTEOPOROSIS
     Dosage: ONE TIME YEARLY INTRAVENOUSLY
     Dates: start: 20120326
  2. GLIPIZIDE (GLIPIZIDE) [Concomitant]
  3. PREVACID (LANSOPRAZOLE) [Concomitant]
  4. GEMFIBROZIL (GEMFIBROZIL) [Concomitant]
  5. METFORMIN (METFORMIN) [Concomitant]
  6. LISINOPRIL/HCTZ (HYDROCHLORTHIAZIDE) [Concomitant]
  7. CELEXA [Suspect]

REACTIONS (8)
  - Hypercalcaemia [None]
  - Asthenia [None]
  - Muscular weakness [None]
  - Nausea [None]
  - Vomiting [None]
  - Pain [None]
  - Tetany [None]
  - Pain in extremity [None]
